FAERS Safety Report 10062002 (Version 2)
Quarter: 2014Q2

REPORT INFORMATION
  Report Type: Spontaneous
  Country: FR (occurrence: None)
  Receive Date: 20140403
  Receipt Date: 20140410
  Transmission Date: 20141212
  Serious: Yes (Life-Threatening, Hospitalization)
  Sender: FDA-Public Use
  Company Number: AUR-APL-2014-04080

PATIENT
  Age: 47 Year
  Sex: Female

DRUGS (7)
  1. SERTRALINE [Suspect]
     Indication: PRODUCT USED FOR UNKNOWN INDICATION
     Route: 048
  2. TENORMIN [Suspect]
     Indication: PRODUCT USED FOR UNKNOWN INDICATION
     Route: 048
  3. ZOLPIDEM TARTRATE [Suspect]
     Indication: PRODUCT USED FOR UNKNOWN INDICATION
     Route: 048
  4. LEXOMIL [Suspect]
     Indication: PRODUCT USED FOR UNKNOWN INDICATION
     Route: 048
  5. LEVOCETIRIZINE [Suspect]
     Indication: PRODUCT USED FOR UNKNOWN INDICATION
     Route: 048
  6. THERALENE [Suspect]
     Indication: PRODUCT USED FOR UNKNOWN INDICATION
     Route: 048
  7. TRAMADOL (TRAMADOL) [Concomitant]

REACTIONS (15)
  - Dermabrasion [None]
  - Oxygen saturation decreased [None]
  - Haemophilus infection [None]
  - Streptococcal infection [None]
  - Blood alcohol increased [None]
  - Hypokalaemia [None]
  - Refusal of treatment by patient [None]
  - Pneumonia aspiration [None]
  - Drug interaction [None]
  - Toxicity to various agents [None]
  - Coma [None]
  - Hypotension [None]
  - Intentional overdose [None]
  - Hypertension [None]
  - Diarrhoea [None]
